FAERS Safety Report 8771634 (Version 1)
Quarter: 2012Q4

REPORT INFORMATION
  Report Type: 
  Country: US (occurrence: US)
  Receive Date: 20120906
  Receipt Date: 20120906
  Transmission Date: 20130627
  Serious: No
  Sender: FDA-Public Use
  Company Number: US-PFIZER INC-2012218696

PATIENT
  Age: 70 Year
  Sex: Male
  Weight: 91.16 kg

DRUGS (9)
  1. AMLODIPINE/ATORVASTATIN [Suspect]
     Indication: HYPERTENSION
     Dosage: [amlodipine besilate 10 mg/ atorvastatin calcium 40 mg], daily
     Route: 048
     Dates: start: 201203
  2. ATENOLOL [Concomitant]
     Dosage: 50 mg, 2x/day
     Route: 048
  3. GLIMEPIRIDE [Concomitant]
     Dosage: 4 mg, 2x/day
     Route: 048
  4. CLOPIDOGREL [Concomitant]
     Dosage: 75 mg, daily
     Route: 048
  5. GLUCOPHAGE [Concomitant]
     Dosage: UNK, 2x/day
     Route: 048
  6. CADUET [Concomitant]
     Dosage: UNK, daily
     Route: 048
  7. BYETTA [Concomitant]
     Dosage: 10 mg, 2x/day
     Route: 048
  8. MYCARDIS [Concomitant]
     Dosage: UNK
  9. ASA [Concomitant]
     Dosage: 81 mg, daily
     Route: 048

REACTIONS (1)
  - Pain in extremity [Not Recovered/Not Resolved]
